FAERS Safety Report 9971942 (Version 1)
Quarter: 2014Q1

REPORT INFORMATION
  Report Type: Report from Study
  Country: US (occurrence: US)
  Receive Date: 20140306
  Receipt Date: 20140306
  Transmission Date: 20141002
  Serious: No
  Sender: FDA-Public Use
  Company Number: US-ABBVIE-13P-163-1148455-00

PATIENT
  Age: 45 Year
  Sex: Male
  Weight: 97.61 kg

DRUGS (6)
  1. HUMIRA [Suspect]
     Indication: CROHN^S DISEASE
     Dates: start: 20130801, end: 20130801
  2. HUMIRA [Suspect]
     Dosage: ONCE
     Dates: start: 20130816, end: 20130816
  3. HUMIRA [Suspect]
     Dates: start: 20130915
  4. CITALOPRAM [Concomitant]
     Indication: DEPRESSION
  5. ENALAPRIL [Concomitant]
     Indication: HYPERTENSION
  6. PREDNISONE [Concomitant]
     Indication: CROHN^S DISEASE

REACTIONS (1)
  - Incorrect dose administered [Not Recovered/Not Resolved]
